FAERS Safety Report 8589780-1 (Version None)
Quarter: 2012Q3

REPORT INFORMATION
  Report Type: 
  Country: None (occurrence: None)
  Receive Date: 20120813
  Receipt Date: 20120801
  Transmission Date: 20120928
  Serious: Yes (Death, Hospitalization, Other)
  Sender: FDA-Public Use
  Company Number: US-ROCHE-1095922

PATIENT
  Age: 58 Year
  Sex: Female
  Weight: 79 kg

DRUGS (9)
  1. IXABEPILONE [Suspect]
     Indication: ENDOMETRIAL CANCER
     Dosage: LAST DOSE ADMINISTERD:12/MAY/2011
     Route: 042
     Dates: start: 20120512
  2. PROTONIX [Concomitant]
  3. NORCO [Concomitant]
  4. COMPAZINE [Concomitant]
  5. AVASTIN [Suspect]
     Indication: ENDOMETRIAL CANCER
     Dosage: LAST DOSE ADMINISTERED ON 12/MAY/2011
     Route: 042
     Dates: start: 20120512
  6. SYNTHROID [Concomitant]
  7. CARBOPLATIN [Suspect]
     Indication: ENDOMETRIAL CANCER
     Dosage: AUC=6; LAST DOSE ADMINISTERED ON:12/MAY/2011
     Route: 042
     Dates: start: 20110512
  8. VENTOLIN [Concomitant]
  9. LOVENOX [Concomitant]

REACTIONS (10)
  - CARDIAC ARREST [None]
  - SEPSIS [None]
  - VOMITING [None]
  - HYPERKALAEMIA [None]
  - SUPRAVENTRICULAR TACHYCARDIA [None]
  - ABDOMINAL DISTENSION [None]
  - OBSTRUCTION GASTRIC [None]
  - ASPIRATION [None]
  - NAUSEA [None]
  - FEBRILE NEUTROPENIA [None]
